FAERS Safety Report 10882760 (Version 1)
Quarter: 2015Q1

REPORT INFORMATION
  Report Type: Spontaneous
  Country: DE (occurrence: DE)
  Receive Date: 20150303
  Receipt Date: 20150303
  Transmission Date: 20150721
  Serious: Yes (Other)
  Sender: FDA-Public Use
  Company Number: DE-ABBVIE-15P-062-1354459-00

PATIENT
  Age: 37 Year
  Sex: Male

DRUGS (1)
  1. ADALIMUMAB [Suspect]
     Active Substance: ADALIMUMAB
     Indication: PSORIATIC ARTHROPATHY
     Route: 065

REACTIONS (4)
  - Acute respiratory distress syndrome [Recovering/Resolving]
  - Disseminated tuberculosis [Recovering/Resolving]
  - Lung infiltration [Recovering/Resolving]
  - Paradoxical drug reaction [Recovering/Resolving]
